FAERS Safety Report 9108914 (Version 2)
Quarter: 2013Q1

REPORT INFORMATION
  Report Type: Spontaneous
  Country: DE (occurrence: SE)
  Receive Date: 20130222
  Receipt Date: 20130225
  Transmission Date: 20140127
  Serious: Yes (Hospitalization)
  Sender: FDA-Public Use
  Company Number: SE-FRI-1000042805

PATIENT
  Sex: Female

DRUGS (10)
  1. ROFLUMILAST [Suspect]
     Indication: CHRONIC OBSTRUCTIVE PULMONARY DISEASE
     Dates: start: 201210, end: 201211
  2. FORASEQ [Concomitant]
  3. TIOTROPIUM [Concomitant]
  4. ACETYLCYSTEINE [Concomitant]
  5. ENALAPRIL [Concomitant]
  6. ALBUTEROL WITH IPRATROPIUM [Concomitant]
  7. PANODIL [Concomitant]
  8. BRICANYL [Concomitant]
     Route: 055
  9. OXASCAND [Concomitant]
  10. ZOPICLONE [Concomitant]

REACTIONS (2)
  - Bowel movement irregularity [Recovered/Resolved]
  - Decreased appetite [Recovered/Resolved]
